FAERS Safety Report 4474084-9 (Version None)
Quarter: 2004Q4

REPORT INFORMATION
  Report Type: 
  Country: None (occurrence: None)
  Receive Date: 20041008
  Receipt Date: 20040929
  Transmission Date: 20050328
  Serious: Yes (Hospitalization)
  Sender: FDA-Public Use
  Company Number: PHO-2004-006

PATIENT
  Age: 54 Year
  Sex: Male

DRUGS (6)
  1. PHOTOFRIN [Suspect]
     Indication: METASTASES TO PLEURA
     Dosage: 2 MG/KG
     Dates: start: 20040914
  2. ZANTAC [Concomitant]
  3. ZOFRAN (ANDASETRAN HCL), [Concomitant]
  4. ALBUTEROL [Concomitant]
  5. MS CONTIN (MORPHINE SULFATE SA) [Concomitant]
  6. PERCOCET [Concomitant]

REACTIONS (3)
  - HYDROTHORAX [None]
  - RESPIRATORY DISTRESS [None]
  - WHITE BLOOD CELL COUNT INCREASED [None]
